FAERS Safety Report 14767777 (Version 4)
Quarter: 2018Q2

REPORT INFORMATION
  Report Type: Report from Study
  Country: US (occurrence: US)
  Receive Date: 20180417
  Receipt Date: 20180606
  Transmission Date: 20180711
  Serious: Yes (Other)
  Sender: FDA-Public Use
  Company Number: US-TESARO, INC.-US-2018TSO01728

PATIENT

DRUGS (2)
  1. ZEJULA [Suspect]
     Active Substance: NIRAPARIB
     Indication: ENDOMETRIAL NEOPLASM
     Dosage: 200 MG, QD
     Route: 048
     Dates: start: 20180329
  2. ZEJULA [Suspect]
     Active Substance: NIRAPARIB
     Dosage: 200 MG, QD
     Route: 048

REACTIONS (21)
  - Gastrooesophageal reflux disease [Not Recovered/Not Resolved]
  - Eastern Cooperative Oncology Group performance status worsened [Unknown]
  - Abnormal faeces [Not Recovered/Not Resolved]
  - Asthenia [Recovered/Resolved]
  - Nausea [Not Recovered/Not Resolved]
  - Product use in unapproved indication [Not Recovered/Not Resolved]
  - Fatigue [Not Recovered/Not Resolved]
  - Upper-airway cough syndrome [Not Recovered/Not Resolved]
  - Emotional distress [Unknown]
  - Constipation [Not Recovered/Not Resolved]
  - Headache [Recovered/Resolved]
  - Dyspnoea [Not Recovered/Not Resolved]
  - Metastases to lung [Unknown]
  - Spinal pain [Not Recovered/Not Resolved]
  - Drug dose omission [Recovered/Resolved]
  - Rash pruritic [Recovered/Resolved]
  - Intentional underdose [Not Recovered/Not Resolved]
  - Immunoglobulin therapy [Unknown]
  - Urethral disorder [Unknown]
  - Balance disorder [Not Recovered/Not Resolved]
  - Memory impairment [Unknown]
